FAERS Safety Report 14448914 (Version 2)
Quarter: 2018Q1

REPORT INFORMATION
  Report Type: Spontaneous
  Country: US (occurrence: US)
  Receive Date: 20180126
  Receipt Date: 20180208
  Transmission Date: 20180509
  Serious: No
  Sender: FDA-Public Use
  Company Number: US-009507513-1801USA004439

PATIENT
  Age: 29 Year
  Sex: Female
  Weight: 77.55 kg

DRUGS (1)
  1. NUVARING [Suspect]
     Active Substance: ETHINYL ESTRADIOL\ETONOGESTREL
     Indication: CONTRACEPTION
     Dosage: 1 RING, UNK
     Route: 067
     Dates: start: 20130702, end: 201801

REACTIONS (2)
  - Fungal infection [Recovered/Resolved]
  - Dyspareunia [Recovering/Resolving]

NARRATIVE: CASE EVENT DATE: 20170701
